FAERS Safety Report 8799210 (Version 1)
Quarter: 2012Q4

REPORT INFORMATION
  Report Type: Spontaneous
  Country: CA (occurrence: None)
  Receive Date: 20120914
  Receipt Date: 20120914
  Transmission Date: 20130627
  Serious: Yes (Hospitalization)
  Sender: FDA-Public Use
  Company Number: 1411799

PATIENT
  Age: 15 Year
  Sex: Male
  Weight: 63 kg

DRUGS (8)
  1. PROPOFOL [Suspect]
     Indication: TO FACILITATE INTUBATION
  2. SEVOFLURANE [Suspect]
     Indication: INDUCTION OF ANESTHESIA
  3. ACETAMINOPHEN [Suspect]
     Indication: PAIN MANAGEMENT
     Route: 048
  4. FENTANYL [Concomitant]
  5. REMIFENTANIL [Concomitant]
  6. THIOPENTAL [Concomitant]
  7. KETAMINE [Concomitant]
  8. HYDROMORPHONE [Concomitant]

REACTIONS (25)
  - Abdominal distension [None]
  - Pain [None]
  - Melaena [None]
  - Hepatomegaly [None]
  - Catabolic state [None]
  - Blood lactic acid increased [None]
  - Ammonia increased [None]
  - Blood creatine phosphokinase MB increased [None]
  - Carnitine decreased [None]
  - Coagulopathy [None]
  - Blood albumin decreased [None]
  - International normalised ratio increased [None]
  - Platelet count decreased [None]
  - Fibrin D dimer increased [None]
  - General physical health deterioration [None]
  - Hepatic encephalopathy [None]
  - Haemodialysis [None]
  - Renal failure acute [None]
  - Acute hepatic failure [None]
  - Hepatic necrosis [None]
  - Hepatic steatosis [None]
  - Hypoalbuminaemia [None]
  - Cerebral haemorrhage [None]
  - Liver transplant [None]
  - Reye^s syndrome [None]
